FAERS Safety Report 4784746-1 (Version None)
Quarter: 2005Q3

REPORT INFORMATION
  Report Type: 
  Country: None (occurrence: None)
  Receive Date: 20050930
  Receipt Date: 20050920
  Transmission Date: 20060218
  Serious: Yes (Hospitalization)
  Sender: FDA-Public Use
  Company Number: FI-ROCHE-418530

PATIENT
  Age: 36 Year
  Sex: Female

DRUGS (2)
  1. ROACCUTAN [Suspect]
     Indication: ACNE
     Route: 048
     Dates: start: 20050905
  2. ESTROGEN/PROGESTERONE [Concomitant]
     Indication: CONTRACEPTION
     Route: 048

REACTIONS (1)
  - THROMBOPHLEBITIS [None]
